FAERS Safety Report 7346002-7 (Version None)
Quarter: 2011Q1

REPORT INFORMATION
  Report Type: 
  Country: None (occurrence: None)
  Receive Date: 20110307
  Receipt Date: 20110307
  Transmission Date: 20110831
  Serious: Yes (Life-Threatening, Other)
  Sender: FDA-Public Use
  Company Number: None

PATIENT
  Age: 57 Year
  Sex: Female
  Weight: 61.2356 kg

DRUGS (4)
  1. LORAZEPAM [Concomitant]
  2. VENLAFAXINE [Suspect]
     Indication: POST-TRAUMATIC STRESS DISORDER
     Dosage: 1 CAPSULE EACH MORNING PO
     Route: 048
     Dates: start: 20110110, end: 20110130
  3. VENLAFAXINE [Suspect]
     Indication: GENERALISED ANXIETY DISORDER
     Dosage: 1 CAPSULE EACH MORNING PO
     Route: 048
     Dates: start: 20110110, end: 20110130
  4. SYNTHROID [Concomitant]

REACTIONS (3)
  - SUICIDAL IDEATION [None]
  - PRODUCT SUBSTITUTION ISSUE [None]
  - DEPRESSION [None]
